FAERS Safety Report 5684014-X (Version None)
Quarter: 2008Q1

REPORT INFORMATION
  Report Type: 
  Country: None (occurrence: None)
  Receive Date: 20080328
  Receipt Date: 20080327
  Transmission Date: 20080703
  Serious: Yes (Death)
  Sender: FDA-Public Use
  Company Number: US-ASTRAZENECA-2008UW02373

PATIENT
  Age: 32 Year
  Sex: Male
  Weight: 81.6 kg

DRUGS (7)
  1. SEROQUEL [Suspect]
     Indication: BIPOLAR I DISORDER
     Route: 048
     Dates: start: 20070411, end: 20071201
  2. SEROQUEL [Suspect]
     Indication: BIPOLAR DISORDER
     Route: 048
     Dates: start: 20070411, end: 20071201
  3. SYNTHROID [Concomitant]
     Indication: HYPOTHYROIDISM
     Dates: start: 20070501, end: 20071201
  4. ANTIHYPERTENSIVES [Concomitant]
  5. NAPROXEN [Concomitant]
  6. LEXAPRO [Concomitant]
     Indication: DEPRESSION
     Route: 048
     Dates: start: 20070411, end: 20071201
  7. CLONIDINE [Concomitant]
     Indication: HYPERTENSION
     Route: 048
     Dates: start: 20070411, end: 20071201

REACTIONS (1)
  - DEATH [None]
